FAERS Safety Report 4687059-1 (Version None)
Quarter: 2005Q2

REPORT INFORMATION
  Report Type: 
  Country: None (occurrence: None)
  Receive Date: 20050608
  Receipt Date: 20041221
  Transmission Date: 20051028
  Serious: Yes (Hospitalization)
  Sender: FDA-Public Use
  Company Number: 800225

PATIENT
  Age: 44 Year
  Sex: Male
  Weight: 85 kg

DRUGS (10)
  1. EXTRANEAL [Suspect]
     Indication: PERITONEAL DIALYSIS
     Dosage: 2000 ML; EVERY DAY; IP
     Dates: start: 20030813
  2. DIANEAL [Concomitant]
  3. WYTENS [Concomitant]
  4. KINEDAK [Concomitant]
  5. FUROSEMIDE [Concomitant]
  6. AMARYL [Concomitant]
  7. LOSARTAN POTASSIUM [Concomitant]
  8. AMLODIN [Concomitant]
  9. PRECIPITATED CALCIUM CARBONATE [Concomitant]
  10. ROCALTROL [Concomitant]

REACTIONS (7)
  - C-REACTIVE PROTEIN INCREASED [None]
  - EOSINOPHIL PERCENTAGE INCREASED [None]
  - HAEMATOCRIT DECREASED [None]
  - HAEMOGLOBIN DECREASED [None]
  - PNEUMONIA [None]
  - RED BLOOD CELL COUNT DECREASED [None]
  - WHITE BLOOD CELL COUNT INCREASED [None]
